FAERS Safety Report 7689624 (Version 5)
Quarter: 2013Q3

REPORT INFORMATION
  Report Type: Report from Study
  Country: JP (occurrence: JP)
  Receive Date: 20101202
  Receipt Date: 20130705
  Transmission Date: 20140515
  Serious: Yes (Life-Threatening, Hospitalization, Disabling, Other)
  Sender: FDA-Public Use
  Company Number: JP-GENZYME-THYM-1002123

PATIENT
  Age: 72 Year
  Sex: Female
  Weight: 57 kg

DRUGS (19)
  1. THYMOGLOBULINE [Suspect]
     Indication: APLASTIC ANAEMIA
     Dosage: 135 MG, QD
     Route: 042
     Dates: start: 20091109, end: 20091113
  2. CICLOSPORIN [Suspect]
     Indication: APLASTIC ANAEMIA
     Dosage: UNK
     Route: 065
     Dates: start: 20090413, end: 20091207
  3. ARBEKACIN SULFATE [Suspect]
     Indication: NEUTROPHIL COUNT DECREASED
     Dosage: UNK
     Route: 065
     Dates: start: 20091130, end: 20091206
  4. LEVOFLOXACIN [Concomitant]
     Indication: ANTIBIOTIC PROPHYLAXIS
     Dosage: UNK
     Route: 065
     Dates: start: 20091106, end: 20091127
  5. FLUCONAZOLE [Concomitant]
     Indication: ANTIFUNGAL PROPHYLAXIS
     Dosage: UNK
     Route: 065
     Dates: start: 20091106
  6. SULFAMETHOXAZOLE, TRIMETHOPRIM [Concomitant]
     Indication: ANTIFUNGAL PROPHYLAXIS
     Dosage: UNK
     Route: 065
     Dates: start: 20091106
  7. RANITIDINE HYDROCHLORIDE [Concomitant]
     Indication: PROPHYLAXIS AGAINST GASTROINTESTINAL ULCER
     Dosage: UNK
     Route: 065
     Dates: start: 20091106
  8. MAGNESIUM OXIDE [Concomitant]
     Indication: CONSTIPATION
     Dosage: UNK
     Route: 065
     Dates: start: 20091110, end: 20100310
  9. SODIUM PHOSPHATE MONOBASIC [Concomitant]
     Indication: CONSTIPATION
     Dosage: UNK
     Route: 065
     Dates: start: 20091111, end: 20091111
  10. METHYLPREDNISOLONE SODIUM SUCCINATE [Concomitant]
     Indication: PREMEDICATION
     Dosage: UNK
     Route: 065
     Dates: start: 20091109, end: 20091113
  11. PREDNISOLONE [Concomitant]
     Indication: PREMEDICATION
     Dosage: UNK
     Route: 065
     Dates: start: 20091114, end: 20091117
  12. PREDNISOLONE [Concomitant]
     Dosage: UNK
     Dates: start: 2009, end: 20091204
  13. RED BLOOD CELLS, CONCENTRATED [Concomitant]
     Indication: APLASTIC ANAEMIA
     Dosage: UNK
     Route: 065
     Dates: start: 20090422, end: 20091225
  14. RED BLOOD CELLS, CONCENTRATED [Concomitant]
     Dosage: UNK
     Dates: start: 20091021, end: 20100107
  15. VALSARTAN [Concomitant]
     Indication: HYPERTENSION
     Dosage: UNK
     Route: 065
     Dates: start: 200610
  16. FILGRASTIM (GENETICAL RECOMBINATION) [Concomitant]
     Indication: NEUTROPHIL COUNT DECREASED
     Dosage: UNK
     Route: 065
     Dates: start: 20100405, end: 20100419
  17. AMLODIPINE BESILATE [Concomitant]
     Indication: HYPERTENSION
     Dosage: UNK
     Route: 065
     Dates: start: 200610, end: 20091107
  18. ZINC SULFATE [Concomitant]
     Indication: NUTRITIONAL SUPPLEMENTATION
     Dosage: UNK
     Route: 065
     Dates: start: 20091129, end: 20100108
  19. LENOGRASTIM (GENETICAL RECOMBINATION) [Concomitant]
     Indication: NEUTROPHIL COUNT DECREASED
     Dosage: UNK
     Route: 065
     Dates: start: 20091127, end: 20100120

REACTIONS (13)
  - Disseminated intravascular coagulation [Recovered/Resolved]
  - Renal impairment [Recovered/Resolved]
  - Cardiac failure [Recovered/Resolved]
  - Lymphocyte count decreased [Recovered/Resolved]
  - Cytomegalovirus test positive [Recovered/Resolved]
  - Neutrophil count decreased [Recovered/Resolved]
  - Staphylococcal sepsis [Recovered/Resolved]
  - Staphylococcal sepsis [Recovered/Resolved]
  - Stomatitis [Recovered/Resolved]
  - Oedema [Recovered/Resolved]
  - Hypoalbuminaemia [Recovered/Resolved]
  - Rash pruritic [Recovered/Resolved]
  - Nausea [Recovered/Resolved]
